FAERS Safety Report 8850823 (Version 2)
Quarter: 2012Q4

REPORT INFORMATION
  Report Type: 
  Country: US (occurrence: US)
  Receive Date: 20121019
  Receipt Date: 20121029
  Transmission Date: 20130627
  Serious: No
  Sender: FDA-Public Use
  Company Number: US-PFIZER INC-2012260555

PATIENT
  Age: 76 Year
  Sex: Female
  Weight: 78.91 kg

DRUGS (13)
  1. LYRICA [Suspect]
     Indication: PAIN
     Dosage: 75 mg, 1x/day
     Route: 048
     Dates: start: 201207
  2. LYRICA [Suspect]
     Indication: NEUROPATHY PERIPHERAL
  3. VERAPAMIL [Concomitant]
     Dosage: 240 mg, 1x/day
  4. VERAPAMIL [Concomitant]
     Dosage: UNK
  5. LOSARTAN [Concomitant]
     Dosage: 100 mg, 1x/day
  6. LOSARTAN [Concomitant]
     Dosage: UNK
  7. GUANFACINE [Concomitant]
     Indication: BLOOD PRESSURE HIGH
     Dosage: 2.5 mg, 1x/day
  8. OMEPRAZOLE [Concomitant]
     Dosage: 20 mg, 1x/day
  9. HYDROCHLOROTHIAZIDE [Concomitant]
     Dosage: 25 mg, 1x/day
  10. LORAZEPAM [Concomitant]
     Dosage: 0.5 mg, 2x/day
  11. LORAZEPAM [Concomitant]
     Dosage: UNK, 1x/day
  12. METFORMIN [Concomitant]
     Indication: DIABETES
     Dosage: 500 mg, 2x/day
  13. METFORMIN [Concomitant]
     Dosage: UNK, 2x/day

REACTIONS (9)
  - Vision blurred [Not Recovered/Not Resolved]
  - Mood swings [Not Recovered/Not Resolved]
  - Feeling abnormal [Not Recovered/Not Resolved]
  - Dizziness [Not Recovered/Not Resolved]
  - Somnolence [Not Recovered/Not Resolved]
  - Weight increased [Unknown]
  - Depressed mood [Not Recovered/Not Resolved]
  - Thinking abnormal [Not Recovered/Not Resolved]
  - Mood altered [Not Recovered/Not Resolved]
